FAERS Safety Report 6110313-3 (Version None)
Quarter: 2009Q1

REPORT INFORMATION
  Report Type: 
  Country: None (occurrence: None)
  Receive Date: 20090310
  Receipt Date: 20090226
  Transmission Date: 20090719
  Serious: Yes (Other)
  Sender: FDA-Public Use
  Company Number: FR-PFIZER INC-2009161580

PATIENT

DRUGS (4)
  1. CHAMPIX [Suspect]
     Indication: SMOKING CESSATION THERAPY
     Dosage: 1 DF, 1X/DAY
     Dates: start: 20080709, end: 20080909
  2. SPIRIVA [Concomitant]
     Indication: CHRONIC OBSTRUCTIVE PULMONARY DISEASE
     Dosage: UNK
  3. SYMBICORT [Concomitant]
     Indication: BRONCHIECTASIS
     Dosage: UNK
  4. BRICANYL [Concomitant]
     Dosage: UNK

REACTIONS (2)
  - PROCTITIS ULCERATIVE [None]
  - SIGMOIDITIS [None]
